FAERS Safety Report 11812902 (Version 2)
Quarter: 2016Q1

REPORT INFORMATION
  Report Type: Report from Study
  Country: JP (occurrence: JP)
  Receive Date: 20151209
  Receipt Date: 20160105
  Transmission Date: 20160525
  Serious: Yes (Hospitalization)
  Sender: FDA-Public Use
  Company Number: JP-PFIZER INC-2015410133

PATIENT
  Age: 70 Year
  Sex: Female
  Weight: 34.9 kg

DRUGS (9)
  1. WARFARIN [Concomitant]
     Active Substance: WARFARIN
     Dosage: 3 MG, DAILY
     Dates: start: 20131003
  2. XALKORI [Suspect]
     Active Substance: CRIZOTINIB
     Indication: NON-SMALL CELL LUNG CANCER
     Dosage: 250 MG, 2X/DAY
     Route: 048
     Dates: start: 20130808, end: 20130927
  3. RINDERON /00008501/ [Concomitant]
     Active Substance: BETAMETHASONE
     Dosage: 2.0 MG, 1X/DAY
     Route: 048
     Dates: start: 20130708, end: 20131008
  4. WARFARIN [Concomitant]
     Active Substance: WARFARIN
     Dosage: 2 MG, DAILY
     Dates: start: 20130928, end: 20131002
  5. TEGRETOL [Concomitant]
     Active Substance: CARBAMAZEPINE
     Dosage: 100 MG, 2X/DAY
     Route: 048
     Dates: start: 20130622
  6. NEXIUM [Concomitant]
     Active Substance: ESOMEPRAZOLE MAGNESIUM
     Dosage: 20 MG, 1X/DAY
     Route: 048
     Dates: start: 20130629
  7. KEPPRA [Concomitant]
     Active Substance: LEVETIRACETAM
     Dosage: 500 MG, 2X/DAY
     Dates: start: 20130623
  8. NAUZELIN [Concomitant]
     Active Substance: DOMPERIDONE
     Dosage: 10 MG, 3X/DAY
     Route: 048
     Dates: start: 20130813
  9. MAGLAX [Concomitant]
     Active Substance: MAGNESIUM OXIDE
     Dosage: 500 MG, 3X/DAY
     Route: 048
     Dates: start: 20130710

REACTIONS (2)
  - Pulmonary artery thrombosis [Recovering/Resolving]
  - Vena cava thrombosis [Recovering/Resolving]

NARRATIVE: CASE EVENT DATE: 20130928
